FAERS Safety Report 8228121-6 (Version None)
Quarter: 2012Q1

REPORT INFORMATION
  Report Type: 
  Country: None (occurrence: None)
  Receive Date: 20120322
  Receipt Date: 20111220
  Transmission Date: 20120608
  Serious: No
  Sender: FDA-Public Use
  Company Number: US-BRISTOL-MYERS SQUIBB COMPANY-16306730

PATIENT
  Age: 61 Year
  Sex: Female
  Weight: 78 kg

DRUGS (3)
  1. LISINOPRIL [Concomitant]
  2. LIPITOR [Concomitant]
  3. ERBITUX [Suspect]
     Indication: COLON CANCER

REACTIONS (2)
  - ALOPECIA [None]
  - ACNE [None]
